FAERS Safety Report 18386208 (Version 1)
Quarter: 2020Q4

REPORT INFORMATION
  Report Type: Spontaneous
  Country: CN (occurrence: CN)
  Receive Date: 20201015
  Receipt Date: 20201015
  Transmission Date: 20210114
  Serious: Yes (Hospitalization, Other)
  Sender: FDA-Public Use
  Company Number: CN-PFIZER INC-2020396895

PATIENT
  Age: 52 Year
  Sex: Female
  Weight: 69 kg

DRUGS (2)
  1. BO BEI [Suspect]
     Active Substance: CARBOPLATIN
     Indication: FALLOPIAN TUBE CANCER
     Dosage: 500 MG, 1X/DAY
     Route: 041
     Dates: start: 20200904, end: 20200904
  2. ANZATAX [PACLITAXEL] [Suspect]
     Active Substance: PACLITAXEL
     Indication: FALLOPIAN TUBE CANCER
     Dosage: 210 MG, 1X/DAY
     Route: 041
     Dates: start: 20200904, end: 20200904

REACTIONS (5)
  - Neutrophil count decreased [Recovering/Resolving]
  - Off label use [Unknown]
  - White blood cell count decreased [Recovering/Resolving]
  - Impaired healing [Recovering/Resolving]
  - Product use in unapproved indication [Unknown]

NARRATIVE: CASE EVENT DATE: 20200904
